FAERS Safety Report 8302137-3 (Version None)
Quarter: 2012Q2

REPORT INFORMATION
  Report Type: 
  Country: None (occurrence: None)
  Receive Date: 20120420
  Receipt Date: 20120410
  Transmission Date: 20120825
  Serious: Yes (Hospitalization)
  Sender: FDA-Public Use
  Company Number: US-BRISTOL-MYERS SQUIBB COMPANY-16471070

PATIENT
  Age: 61 Year
  Sex: Male

DRUGS (7)
  1. INSULIN HUMAN [Suspect]
     Indication: TYPE 2 DIABETES MELLITUS
     Dosage: 1DF: 100MICROMOL INSULIN HUMAN SLIDING SCALE
  2. ASPIRIN [Concomitant]
     Dosage: 1 DF: MORE THAN 100MG SINCE JUL10
     Dates: start: 20100701
  3. GLIPIZIDE [Suspect]
     Indication: TYPE 2 DIABETES MELLITUS
     Dosage: 2 TABS
  4. SAXAGLIPTIN [Suspect]
     Indication: TYPE 2 DIABETES MELLITUS
     Route: 048
     Dates: start: 20100709
  5. LANTUS [Suspect]
     Indication: TYPE 2 DIABETES MELLITUS
     Dosage: 1 DF: 45UMOL STOPPED:2AUG10 RESTARTED:3AUG10-19JUL11 65IU
  6. INSULIN [Suspect]
     Indication: TYPE 2 DIABETES MELLITUS
     Dates: start: 20110720
  7. BLINDED: PLACEBO [Suspect]
     Indication: TYPE 2 DIABETES MELLITUS
     Route: 048
     Dates: start: 20100709

REACTIONS (1)
  - THYROID ADENOMA [None]
